FAERS Safety Report 4958466-4 (Version None)
Quarter: 2006Q1

REPORT INFORMATION
  Report Type: 
  Country: None (occurrence: None)
  Receive Date: 20060330
  Receipt Date: 20060320
  Transmission Date: 20060701
  Serious: Yes (Hospitalization)
  Sender: FDA-Public Use
  Company Number: DE-ABBOTT-06P-062-0328647-00

PATIENT
  Sex: Male
  Weight: 74 kg

DRUGS (5)
  1. KALETRA [Suspect]
     Indication: HIV INFECTION
     Route: 048
     Dates: start: 20060208
  2. TRUVADA [Concomitant]
     Indication: HIV INFECTION
     Route: 048
     Dates: start: 20060207
  3. LOPERAMIDE [Concomitant]
     Indication: PROPHYLAXIS AGAINST DIARRHOEA
     Dosage: 1-2MG
     Route: 048
     Dates: start: 20060207
  4. LOPERAMIDE [Concomitant]
     Indication: RETROVIRAL INFECTION
  5. FLUCONAZOLE [Concomitant]
     Indication: ORAL CANDIDIASIS
     Route: 048

REACTIONS (4)
  - NIGHT SWEATS [None]
  - PNEUMOCYSTIS JIROVECI PNEUMONIA [None]
  - PNEUMONIA [None]
  - TUBERCULOSIS [None]
